FAERS Safety Report 5129923-5 (Version None)
Quarter: 2006Q4

REPORT INFORMATION
  Report Type: 
  Country: None (occurrence: None)
  Receive Date: 20061013
  Receipt Date: 20061005
  Transmission Date: 20070319
  Serious: Yes (Other)
  Sender: FDA-Public Use
  Company Number: 2006S1000202

PATIENT
  Age: 62 Year
  Sex: Female

DRUGS (5)
  1. NITRIC OXIDE [Suspect]
     Indication: VENTRICULAR ASSIST DEVICE INSERTION
     Dosage: 40 PPM; CONT INH
     Route: 055
     Dates: start: 20060929, end: 20061001
  2. FUROSEMIDE [Concomitant]
  3. TAZOBACTAM [Concomitant]
  4. HEPARIN SODIUM [Concomitant]
  5. DOPAMINE HCL [Concomitant]

REACTIONS (3)
  - POST PROCEDURAL HAEMORRHAGE [None]
  - SURGICAL PROCEDURE REPEATED [None]
  - THORACOTOMY [None]
